FAERS Safety Report 12555560 (Version 1)
Quarter: 2016Q3

REPORT INFORMATION
  Report Type: Spontaneous
  Country: DE (occurrence: DE)
  Receive Date: 20160714
  Receipt Date: 20160714
  Transmission Date: 20161109
  Serious: Yes (Other)
  Sender: FDA-Public Use
  Company Number: DE-009507513-1604DEU010354

PATIENT
  Age: 46 Year
  Sex: Male

DRUGS (1)
  1. KEYTRUDA [Suspect]
     Active Substance: PEMBROLIZUMAB
     Dosage: UNK, EVERY TWO WEEKS
     Dates: start: 20140211, end: 20150625

REACTIONS (2)
  - Product use issue [Unknown]
  - Sarcoidosis [Recovering/Resolving]

NARRATIVE: CASE EVENT DATE: 20140211
